FAERS Safety Report 9201957 (Version 1)
Quarter: 2013Q2

REPORT INFORMATION
  Report Type: Report from Study
  Country: DE (occurrence: DE)
  Receive Date: 20130401
  Receipt Date: 20130401
  Transmission Date: 20140414
  Serious: Yes (Death)
  Sender: FDA-Public Use
  Company Number: DE-ROCHE-1205645

PATIENT
  Age: 34 Year
  Sex: Female
  Weight: 40.7 kg

DRUGS (15)
  1. PERTUZUMAB [Suspect]
     Indication: BREAST CANCER
     Route: 042
     Dates: start: 20130108, end: 20130225
  2. HERCEPTIN [Concomitant]
     Indication: BREAST CANCER
     Route: 042
     Dates: start: 20130109, end: 20130225
  3. AREDIA [Concomitant]
     Indication: BREAST CANCER
     Route: 042
     Dates: start: 20111108, end: 20130225
  4. FENTANYL [Concomitant]
     Indication: PAIN
     Dosage: 200 TDS
     Route: 065
  5. OMEPRAZOL [Concomitant]
     Route: 065
     Dates: start: 20130318
  6. ARCOXIA [Concomitant]
     Route: 065
     Dates: start: 20130318, end: 20130323
  7. LYRICA [Concomitant]
     Route: 065
     Dates: start: 20130318, end: 20130321
  8. DEXAMETHASON [Concomitant]
     Route: 065
     Dates: start: 20130318, end: 20130321
  9. MYKUNDEX [Concomitant]
     Route: 065
     Dates: start: 20130318, end: 20130321
  10. TAVOR (GERMANY) [Concomitant]
     Route: 065
     Dates: start: 20130320, end: 20130321
  11. LEVOMEPROMAZINE [Concomitant]
     Dosage: 3X2GT 1D
     Route: 065
     Dates: start: 20130319, end: 20130321
  12. METAMIZOL [Concomitant]
     Dosage: 4X40 PH/D
     Route: 065
     Dates: start: 20130318, end: 20130321
  13. MORPHINE [Concomitant]
     Route: 042
     Dates: start: 20130318, end: 20130321
  14. NEXIUM [Concomitant]
     Route: 065
     Dates: start: 20130320, end: 20130321
  15. ANASTROZOL [Concomitant]
     Indication: BREAST CANCER
     Route: 048
     Dates: start: 20120105

REACTIONS (3)
  - Breast cancer [Fatal]
  - Disease progression [Fatal]
  - Anaemia [Recovered/Resolved]
